FAERS Safety Report 9044089 (Version 1)
Quarter: 2013Q1

REPORT INFORMATION
  Report Type: Spontaneous
  Country: US (occurrence: US)
  Receive Date: 20130130
  Receipt Date: 20130130
  Transmission Date: 20140127
  Serious: Yes (Other)
  Sender: FDA-Public Use
  Company Number: PHEH2013US002283

PATIENT
  Age: 41 Year
  Sex: Female
  Weight: 64 kg

DRUGS (5)
  1. AFINITOR [Suspect]
     Dosage: 10 MG, QD
     Route: 048
  2. EFFEXOR [Concomitant]
     Dosage: 75 MG,
  3. AROMASIN [Concomitant]
     Dosage: 25 MG,
  4. XGEVA [Concomitant]
  5. OXYCODONE W/APAP [Concomitant]
     Dosage: 5-325 MG

REACTIONS (5)
  - Lymph node pain [Unknown]
  - Pain in extremity [Unknown]
  - Anaemia [Unknown]
  - Dyspnoea [Unknown]
  - Cough [Unknown]
